FAERS Safety Report 8417156-6 (Version None)
Quarter: 2012Q2

REPORT INFORMATION
  Report Type: 
  Country: None (occurrence: None)
  Receive Date: 20120606
  Receipt Date: 20120530
  Transmission Date: 20120825
  Serious: Yes (Hospitalization)
  Sender: FDA-Public Use
  Company Number: GB-ROCHE-1074189

PATIENT
  Sex: Male

DRUGS (3)
  1. AZULFIDINE [Concomitant]
  2. PREDNISOLONE [Concomitant]
     Indication: PRODUCT USED FOR UNKNOWN INDICATION
  3. MABTHERA [Suspect]
     Indication: PRODUCT USED FOR UNKNOWN INDICATION
     Dosage: LAST DOSE PRIRO TO SAE WAS ON 15 JUL 2010
     Dates: start: 20060503

REACTIONS (2)
  - ACUTE CORONARY SYNDROME [None]
  - TROPONIN INCREASED [None]
